FAERS Safety Report 20594688 (Version 1)
Quarter: 2022Q1

REPORT INFORMATION
  Report Type: Spontaneous
  Country: US (occurrence: None)
  Receive Date: 20220314
  Receipt Date: 20220314
  Transmission Date: 20220423
  Serious: Yes (Hospitalization)
  Sender: FDA-Public Use
  Company Number: None

PATIENT
  Age: 67 Year
  Sex: Female

DRUGS (1)
  1. TOBRAMYCIN [Suspect]
     Active Substance: TOBRAMYCIN
     Indication: Pseudomonas infection
     Dosage: FREQUENCY : TWICE A DAY;?
     Route: 055
     Dates: start: 20220216

REACTIONS (2)
  - Pseudomonas infection [None]
  - Condition aggravated [None]

NARRATIVE: CASE EVENT DATE: 20220302
